FAERS Safety Report 9061629 (Version 1)
Quarter: 2013Q1

REPORT INFORMATION
  Report Type: Spontaneous
  Country: US (occurrence: None)
  Receive Date: 20130208
  Receipt Date: 20130208
  Transmission Date: 20140127
  Serious: Yes (Hospitalization)
  Sender: FDA-Public Use
  Company Number: None

PATIENT
  Age: 77 Year
  Sex: Female
  Weight: 54 kg

DRUGS (16)
  1. WARFARIN [Suspect]
     Indication: THROMBOSIS PROPHYLAXIS
     Route: 048
     Dates: start: 20120120, end: 20120217
  2. WARFARIN [Suspect]
     Indication: HIP SURGERY
     Route: 048
     Dates: start: 20120120, end: 20120217
  3. ACETAMINOPHEN [Concomitant]
  4. ASPIRIN [Concomitant]
  5. ATENOLOL [Concomitant]
  6. BISACODYL [Concomitant]
  7. BRIMONIDINE [Concomitant]
  8. DIVALPROEX [Concomitant]
  9. FERROUS SULFATE [Concomitant]
  10. MOM [Concomitant]
  11. MULTIVITAMIN [Concomitant]
  12. OLANZAPINE [Concomitant]
  13. OXYCODONE [Concomitant]
  14. SERTRALINE [Concomitant]
  15. TRAZODONE [Concomitant]
  16. TROLAMINE SALICYLATE CREAM [Concomitant]

REACTIONS (3)
  - International normalised ratio increased [None]
  - Melaena [None]
  - Haemorrhage [None]
